FAERS Safety Report 6930831-5 (Version None)
Quarter: 2010Q3

REPORT INFORMATION
  Report Type: 
  Country: None (occurrence: None)
  Receive Date: 20100818
  Receipt Date: 20100809
  Transmission Date: 20110219
  Serious: No
  Sender: FDA-Public Use
  Company Number: US-US-EMD SERONO, INC.-7013720

PATIENT
  Sex: Male

DRUGS (2)
  1. GONAL-F RFF PEN [Suspect]
  2. UNSPECIFIED PILL [Suspect]

REACTIONS (1)
  - CALCINOSIS [None]
